FAERS Safety Report 8884550 (Version 1)
Quarter: 2012Q4

REPORT INFORMATION
  Report Type: 
  Country: JP (occurrence: JP)
  Receive Date: 20121104
  Receipt Date: 20121104
  Transmission Date: 20130627
  Serious: Yes (Other)
  Sender: FDA-Public Use
  Company Number: JP-BRISTOL-MYERS SQUIBB COMPANY-16666893

PATIENT
  Age: 86 Year
  Sex: Female

DRUGS (15)
  1. ABILIFY ORAL SOLUTION [Suspect]
     Indication: SCHIZOPHRENIA
     Dosage: Abilify tab:12mg milligram,QD,2011-26Apr12.
Abilify oral:16May12-22may12.
     Route: 048
     Dates: start: 20120516
  2. ABILIFY TABS [Suspect]
     Indication: SCHIZOPHRENIA
     Route: 048
     Dates: start: 2011, end: 20120426
  3. BUFFERIN TABS [Concomitant]
     Dates: start: 2011, end: 20120426
  4. GASMOTIN [Concomitant]
     Dosage: tabs.
     Dates: start: 2011, end: 20120426
  5. BIO-THREE [Concomitant]
     Dosage: tabs.
     Dates: start: 2011, end: 20120426
  6. RACOL [Concomitant]
     Dosage: Oral liquid.
     Dates: start: 2011, end: 20120426
  7. BLOPRESS [Concomitant]
     Dosage: tabs.
     Dates: start: 2011, end: 20120426
  8. LANSOPRAZOLE [Concomitant]
     Dosage: tabs.
     Dates: start: 2011, end: 20120426
  9. SIGMART [Concomitant]
     Dosage: tabs.
     Dates: start: 2011, end: 20120426
  10. CONIEL [Concomitant]
     Dosage: tabs.
     Dates: start: 2011, end: 20120426
  11. FRANDOL [Concomitant]
     Dosage: Frandol S,Transdermal patch.
     Route: 062
     Dates: start: 2011, end: 20120426
  12. SENNOSIDE [Concomitant]
     Dates: start: 2011, end: 20120426
  13. LAXOBERON [Concomitant]
     Dosage: tabs
     Dates: start: 2011, end: 20120426
  14. LORAZEPAM [Concomitant]
     Dosage: tabs
     Dates: start: 2011, end: 20120426
  15. PRAVASTATIN SODIUM [Concomitant]
     Dosage: tabs
     Dates: start: 2011, end: 20120426

REACTIONS (3)
  - White blood cell count decreased [Recovered/Resolved]
  - Pneumonia [Recovering/Resolving]
  - Oedema [Unknown]
